FAERS Safety Report 5955282-1 (Version None)
Quarter: 2008Q4

REPORT INFORMATION
  Report Type: 
  Country: None (occurrence: None)
  Receive Date: 20081112
  Receipt Date: 20080910
  Transmission Date: 20090506
  Serious: Yes (Other)
  Sender: FDA-Public Use
  Company Number: 2008AP002349

PATIENT
  Sex: Female

DRUGS (2)
  1. AMLODIPINE BESYLATE [Suspect]
     Dosage: 10 MG;QD
     Route: 050
  2. BENDROFLUMETHAZIDE (BENDROFLUMETHAZIDE) [Suspect]
     Route: 050

REACTIONS (2)
  - ABORTION SPONTANEOUS [None]
  - PATERNAL DRUGS AFFECTING FOETUS [None]
